FAERS Safety Report 5899883-8 (Version None)
Quarter: 2008Q3

REPORT INFORMATION
  Report Type: 
  Country: None (occurrence: None)
  Receive Date: 20080925
  Receipt Date: 20080925
  Transmission Date: 20090109
  Serious: Yes (Other)
  Sender: FDA-Public Use
  Company Number: None

PATIENT
  Sex: Female
  Weight: 57.6068 kg

DRUGS (1)
  1. CYMBALTA [Suspect]
     Indication: DEPRESSION
     Dosage: 60 MG DAILY PO
     Route: 048
     Dates: start: 20080220, end: 20080801

REACTIONS (21)
  - ABNORMAL DREAMS [None]
  - ANXIETY [None]
  - COLD SWEAT [None]
  - CRYING [None]
  - DRUG WITHDRAWAL SYNDROME [None]
  - DRY MOUTH [None]
  - DYSKINESIA [None]
  - EMOTIONAL DISORDER [None]
  - HYPERHIDROSIS [None]
  - IMPAIRED WORK ABILITY [None]
  - INSOMNIA [None]
  - LETHARGY [None]
  - MORBID THOUGHTS [None]
  - NAUSEA [None]
  - NIGHT SWEATS [None]
  - NIGHTMARE [None]
  - PARAESTHESIA [None]
  - SKIN LESION [None]
  - SUICIDAL IDEATION [None]
  - VERTIGO [None]
  - VOMITING [None]
